FAERS Safety Report 19397751 (Version 2)
Quarter: 2021Q2

REPORT INFORMATION
  Report Type: Spontaneous
  Country: DE (occurrence: DE)
  Receive Date: 20210610
  Receipt Date: 20210622
  Transmission Date: 20210717
  Serious: Yes (Other)
  Sender: FDA-Public Use
  Company Number: DE-TEVA-2021-DE-1920069

PATIENT
  Age: 46 Year
  Sex: Male

DRUGS (4)
  1. PREDNISOLONE. [Suspect]
     Active Substance: PREDNISOLONE
     Dosage: 15 MILLIGRAM DAILY; DOSE AT THE TIME OF DISCONTINUATION
     Route: 065
     Dates: end: 2015
  2. PREDNISOLONE. [Suspect]
     Active Substance: PREDNISOLONE
     Indication: INFLAMMATORY BOWEL DISEASE
     Dosage: 50 MILLIGRAM DAILY; WITH SLOW TAPERING
     Route: 065
     Dates: start: 20150807, end: 20150924
  3. METFORMIN [Suspect]
     Active Substance: METFORMIN HYDROCHLORIDE
     Indication: PANCREATOGENOUS DIABETES
     Route: 065
  4. METFORMIN [Suspect]
     Active Substance: METFORMIN HYDROCHLORIDE
     Indication: STEROID DIABETES
     Dosage: 1000 MILLIGRAM DAILY; MEDICATION ERROR
     Route: 065
     Dates: start: 20151010

REACTIONS (2)
  - Steroid diabetes [Recovering/Resolving]
  - Contraindicated product administered [Unknown]

NARRATIVE: CASE EVENT DATE: 2015
